FAERS Safety Report 24694892 (Version 1)
Quarter: 2024Q4

REPORT INFORMATION
  Report Type: Spontaneous
  Country: US (occurrence: None)
  Receive Date: 20241203
  Receipt Date: 20241203
  Transmission Date: 20250115
  Serious: Yes (Hospitalization)
  Sender: Public
  Company Number: None

PATIENT
  Age: 77 Year
  Sex: Male
  Weight: 109 kg

DRUGS (4)
  1. CISPLATIN [Suspect]
     Active Substance: CISPLATIN
     Indication: Small cell carcinoma
     Dosage: FREQUENCY : ONCE;?
     Route: 042
  2. ETOPOSIDE [Suspect]
     Active Substance: ETOPOSIDE
     Route: 048
  3. ELIQUIS [Suspect]
     Active Substance: APIXABAN
  4. PEGFILGRASTIM [Suspect]
     Active Substance: PEGFILGRASTIM

REACTIONS (7)
  - Leukopenia [None]
  - Pancytopenia [None]
  - Thrombocytopenia [None]
  - Productive cough [None]
  - Unevaluable event [None]
  - Dysphagia [None]
  - Febrile neutropenia [None]

NARRATIVE: CASE EVENT DATE: 20241002
